FAERS Safety Report 16395921 (Version 1)
Quarter: 2019Q2

REPORT INFORMATION
  Report Type: Spontaneous
  Country: US (occurrence: US)
  Receive Date: 20190605
  Receipt Date: 20190605
  Transmission Date: 20190711
  Serious: No
  Sender: FDA-Public Use
  Company Number: US-PFIZER INC-2019239075

PATIENT
  Age: 69 Year
  Sex: Female

DRUGS (4)
  1. PSYLLIUM [PLANTAGO AFRA] [Suspect]
     Active Substance: PLANTAGO AFRA SEED
     Dosage: UNK
  2. METRONIDAZOLE. [Suspect]
     Active Substance: METRONIDAZOLE
     Dosage: UNK
  3. LACTOSE [Suspect]
     Active Substance: LACTOSE
     Dosage: UNK
  4. BUPIVACAINE HCL [Suspect]
     Active Substance: BUPIVACAINE HYDROCHLORIDE
     Dosage: UNK

REACTIONS (1)
  - Drug hypersensitivity [Unknown]
